FAERS Safety Report 7917062-7 (Version None)
Quarter: 2011Q4

REPORT INFORMATION
  Report Type: 
  Country: None (occurrence: None)
  Receive Date: 20111116
  Receipt Date: 20111110
  Transmission Date: 20120403
  Serious: Yes (Other)
  Sender: FDA-Public Use
  Company Number: GR-PFIZER INC-2011275424

PATIENT
  Sex: Male

DRUGS (2)
  1. DUTASTERIDE/TAMSULOSIN HCL [Suspect]
     Indication: BENIGN PROSTATIC HYPERPLASIA
     Dosage: UNK
     Dates: start: 20111101
  2. VIAGRA [Suspect]
     Dosage: 25 MG, EVERY 10 TO 15 DAYS

REACTIONS (1)
  - BRADYCARDIA [None]
